FAERS Safety Report 24287174 (Version 1)
Quarter: 2024Q3

REPORT INFORMATION
  Report Type: Spontaneous
  Country: US (occurrence: None)
  Receive Date: 20240904
  Receipt Date: 20240904
  Transmission Date: 20241016
  Serious: Yes (Life-Threatening, Hospitalization)
  Sender: Public
  Company Number: None

PATIENT
  Age: 64 Year
  Sex: Female
  Weight: 99 kg

DRUGS (1)
  1. FERRIC CARBOXYMALTOSE [Suspect]
     Active Substance: FERRIC CARBOXYMALTOSE
     Indication: Iron deficiency anaemia
     Dosage: OTHER FREQUENCY : ONCE;?
     Route: 042
     Dates: start: 20240731, end: 20240731

REACTIONS (18)
  - Abdominal pain [None]
  - Nausea [None]
  - Vomiting [None]
  - Pyrexia [None]
  - Chills [None]
  - Dyspnoea [None]
  - Chest discomfort [None]
  - Dysphagia [None]
  - Swelling face [None]
  - Somnolence [None]
  - Respiratory rate increased [None]
  - Tachycardia [None]
  - Haemoglobin decreased [None]
  - Procalcitonin increased [None]
  - Hypokalaemia [None]
  - Gastrointestinal wall thickening [None]
  - Sepsis [None]
  - Hepatic steatosis [None]

NARRATIVE: CASE EVENT DATE: 20240731
